FAERS Safety Report 9943550 (Version 2)
Quarter: 2014Q1

REPORT INFORMATION
  Report Type: Spontaneous
  Country: PR (occurrence: PR)
  Receive Date: 20140303
  Receipt Date: 20140303
  Transmission Date: 20141002
  Serious: No
  Sender: FDA-Public Use
  Company Number: PR-ABBVIE-13P-131-1043786-00

PATIENT
  Sex: Female

DRUGS (4)
  1. HUMIRA [Suspect]
     Indication: RHEUMATOID ARTHRITIS
     Route: 058
     Dates: start: 200903, end: 201002
  2. HUMIRA [Suspect]
     Route: 058
     Dates: start: 201004, end: 201201
  3. HUMIRA [Suspect]
     Route: 058
     Dates: start: 201201
  4. METHOTREXATE [Concomitant]
     Indication: PRODUCT USED FOR UNKNOWN INDICATION
     Dosage: 12.5 MG WEEKLY, 5 TABLETS WEEKLY
     Route: 048

REACTIONS (1)
  - Influenza [Unknown]
